FAERS Safety Report 14759565 (Version 2)
Quarter: 2018Q2

REPORT INFORMATION
  Report Type: Report from Study
  Country: NL (occurrence: NL)
  Receive Date: 20180413
  Receipt Date: 20180606
  Transmission Date: 20180711
  Serious: Yes (Death)
  Sender: FDA-Public Use
  Company Number: US-ASTRAZENECA-2018SE47046

PATIENT
  Age: 81 Day
  Sex: Female

DRUGS (1)
  1. SYNAGIS [Suspect]
     Active Substance: PALIVIZUMAB
     Indication: ANTIVIRAL PROPHYLAXIS
     Dosage: 65 MG MONTHLY-28-FEB-2018; 58 MG MONTHLY-28-MAR-2018
     Route: 030
     Dates: start: 20180228, end: 20180328

REACTIONS (1)
  - Death [Fatal]

NARRATIVE: CASE EVENT DATE: 20180330
